FAERS Safety Report 7480379-7 (Version None)
Quarter: 2011Q2

REPORT INFORMATION
  Report Type: 
  Country: None (occurrence: None)
  Receive Date: 20110504
  Receipt Date: 20110426
  Transmission Date: 20111010
  Serious: Yes (Hospitalization, Other)
  Sender: FDA-Public Use
  Company Number: 201110204

PATIENT
  Sex: Male

DRUGS (1)
  1. LIORESAL [Suspect]
     Indication: MUSCLE SPASTICITY
     Dosage: MCG, DAILY, INTRATHECAL
     Route: 037

REACTIONS (11)
  - DEVICE BATTERY ISSUE [None]
  - BLOOD PRESSURE INCREASED [None]
  - RHABDOMYOLYSIS [None]
  - PAIN [None]
  - HYPERHIDROSIS [None]
  - UNEVALUABLE EVENT [None]
  - URINARY RETENTION POSTOPERATIVE [None]
  - TACHYCARDIA [None]
  - HYPERTONIA [None]
  - INTESTINAL DILATATION [None]
  - MUSCLE SPASTICITY [None]
